FAERS Safety Report 19665637 (Version 1)
Quarter: 2021Q3

REPORT INFORMATION
  Report Type: Spontaneous
  Country: US (occurrence: US)
  Receive Date: 20210806
  Receipt Date: 20210806
  Transmission Date: 20211014
  Serious: Yes (Other)
  Sender: FDA-Public Use
  Company Number: US-SHILPA MEDICARE LIMITED-SML-US-2021-00938

PATIENT
  Age: 64 Year
  Sex: Male

DRUGS (9)
  1. OXALIPLATIN. [Suspect]
     Active Substance: OXALIPLATIN
     Indication: CHOLANGIOCARCINOMA
     Dosage: DOSE REDUCED ON CYCLE 3.
     Route: 065
  2. PROTEIN BOUND PACLITAXEL [Suspect]
     Active Substance: PACLITAXEL
     Dosage: DOSE REDUCED ON CYCLE 3.
     Route: 065
  3. GEMCITABINE, UNKNOWN [Suspect]
     Active Substance: GEMCITABINE
     Dosage: DOSE REDUCED ON CYCLE 3.
     Route: 065
  4. IRINOTECAN, UNKNOWN [Suspect]
     Active Substance: IRINOTECAN
     Indication: CHOLANGIOCARCINOMA
     Dosage: ON CYCLE 3
     Route: 065
  5. IRINOTECAN, UNKNOWN [Suspect]
     Active Substance: IRINOTECAN
     Dosage: DOSE REDUCED ON CYCLE 3.
     Route: 065
  6. GEMCITABINE, UNKNOWN [Suspect]
     Active Substance: GEMCITABINE
     Indication: CHOLANGIOCARCINOMA
     Dosage: ON CYCLE 3
     Route: 065
  7. FLUOROURACIL. [Suspect]
     Active Substance: FLUOROURACIL
     Indication: CHOLANGIOCARCINOMA
     Dosage: ON CYCLE 3
     Route: 065
  8. LEUCOVORIN. [Suspect]
     Active Substance: LEUCOVORIN
     Indication: CHOLANGIOCARCINOMA
     Dosage: ON CYCLE 3
     Route: 065
  9. PROTEIN BOUND PACLITAXEL [Suspect]
     Active Substance: PACLITAXEL
     Indication: CHOLANGIOCARCINOMA
     Dosage: ON CYCLE 3
     Route: 065

REACTIONS (4)
  - Neoplasm progression [Unknown]
  - Temperature intolerance [Unknown]
  - Mucosal inflammation [Unknown]
  - Gene mutation [Unknown]
